FAERS Safety Report 24263890 (Version 2)
Quarter: 2025Q1

REPORT INFORMATION
  Report Type: Spontaneous
  Country: US (occurrence: US)
  Receive Date: 20240829
  Receipt Date: 20250130
  Transmission Date: 20250408
  Serious: Yes (Other)
  Sender: SUNOVION
  Company Number: US-SUMITOMO PHARMA SWITZERLAND GMBH-2024SPA001759

PATIENT

DRUGS (3)
  1. GEMTESA [Suspect]
     Active Substance: VIBEGRON
     Route: 048
     Dates: start: 20240817
  2. OXYBUTYNIN [Suspect]
     Active Substance: OXYBUTYNIN
     Route: 065
  3. JARDIANCE [Concomitant]
     Active Substance: EMPAGLIFLOZIN
     Route: 065

REACTIONS (5)
  - Neoplasm malignant [Unknown]
  - Ovarian cancer [Unknown]
  - Incontinence [Unknown]
  - Cough [Recovering/Resolving]
  - Therapeutic product effect decreased [Unknown]
